FAERS Safety Report 12315607 (Version 1)
Quarter: 2016Q2

REPORT INFORMATION
  Report Type: Spontaneous
  Country: CN (occurrence: CN)
  Receive Date: 20160428
  Receipt Date: 20160428
  Transmission Date: 20160815
  Serious: Yes (Hospitalization)
  Sender: FDA-Public Use
  Company Number: CN-009507513-1604CHN015182

PATIENT
  Age: 62 Year
  Sex: Female
  Weight: 65 kg

DRUGS (1)
  1. IMIPENEM AND CILASTATIN [Suspect]
     Active Substance: CILASTATIN SODIUM\IMIPENEM
     Indication: INFECTION
     Dosage: 0.5 G, TID
     Route: 041
     Dates: start: 20151113, end: 20151117

REACTIONS (7)
  - Faeces discoloured [Recovering/Resolving]
  - Trismus [Recovering/Resolving]
  - Arrhythmia [Recovering/Resolving]
  - Confusional state [Recovering/Resolving]
  - Tic [Recovering/Resolving]
  - Speech disorder [Recovering/Resolving]
  - Foaming at mouth [Recovering/Resolving]

NARRATIVE: CASE EVENT DATE: 20151117
